FAERS Safety Report 10611144 (Version 1)
Quarter: 2014Q4

REPORT INFORMATION
  Report Type: Spontaneous
  Country: IN (occurrence: None)
  Receive Date: 20141124
  Receipt Date: 20141124
  Transmission Date: 20150529
  Serious: Yes (Hospitalization, Other)
  Sender: FDA-Public Use
  Company Number: IN-ZYDUS-005510

PATIENT
  Age: 17 Year
  Sex: Female

DRUGS (1)
  1. RAMIPRIL. [Suspect]
     Active Substance: RAMIPRIL

REACTIONS (14)
  - Peripheral coldness [None]
  - Hepatic function abnormal [None]
  - Respiratory rate increased [None]
  - Fall [None]
  - Lactic acidosis [None]
  - Hyperkalaemia [None]
  - Suicide attempt [None]
  - Acute kidney injury [None]
  - Toxicity to various agents [None]
  - Coma scale abnormal [None]
  - Metabolic acidosis [None]
  - Intentional overdose [None]
  - Cardiogenic shock [None]
  - Blood alkaline phosphatase increased [None]
